FAERS Safety Report 8987399 (Version 1)
Quarter: 2012Q4

REPORT INFORMATION
  Report Type: 
  Country: CH (occurrence: CH)
  Receive Date: 20121226
  Receipt Date: 20121226
  Transmission Date: 20130627
  Serious: Yes (Death)
  Sender: FDA-Public Use
  Company Number: CH-CELGENEUS-151-50794-12122196

PATIENT
  Age: 47 Year
  Sex: Male

DRUGS (1)
  1. VIDAZA [Suspect]
     Indication: ACUTE ERYTHROID LEUKEMIA
     Route: 065

REACTIONS (2)
  - Death [Fatal]
  - No therapeutic response [Unknown]
